FAERS Safety Report 7548266-3 (Version None)
Quarter: 2011Q2

REPORT INFORMATION
  Report Type: 
  Country: None (occurrence: None)
  Receive Date: 20110615
  Receipt Date: 20110610
  Transmission Date: 20111010
  Serious: No
  Sender: FDA-Public Use
  Company Number: US-PFIZER INC-2011114504

PATIENT
  Sex: Male
  Weight: 14.512 kg

DRUGS (1)
  1. CHILDREN'S ADVIL [Suspect]
     Indication: PYREXIA
     Dosage: 1 TEASPOON, UNK
     Dates: start: 20110501, end: 20110526

REACTIONS (3)
  - HOSTILITY [None]
  - PSYCHOMOTOR HYPERACTIVITY [None]
  - AGGRESSION [None]
